FAERS Safety Report 10264958 (Version 1)
Quarter: 2014Q2

REPORT INFORMATION
  Report Type: Spontaneous
  Country: US (occurrence: None)
  Receive Date: 20140625
  Receipt Date: 20140625
  Transmission Date: 20141212
  Serious: No
  Sender: FDA-Public Use
  Company Number: None

PATIENT
  Age: 54 Year
  Sex: Female

DRUGS (1)
  1. GAMMAGARD [Suspect]
     Indication: IMMUNODEFICIENCY COMMON VARIABLE
     Dosage: GAMMAGARD LIQUID 60 GRAMS  EVERY 3 WEEKS  PORT
     Dates: start: 20120424

REACTIONS (4)
  - Pain [None]
  - Erythema [None]
  - Wrong technique in drug usage process [None]
  - Infusion site extravasation [None]
